FAERS Safety Report 8729378 (Version 2)
Quarter: 2012Q4

REPORT INFORMATION
  Report Type: 
  Country: US (occurrence: US)
  Receive Date: 20120817
  Receipt Date: 20120924
  Transmission Date: 20130627
  Serious: Yes (Other)
  Sender: FDA-Public Use
  Company Number: US-PFIZER INC-2012197781

PATIENT
  Age: 69 Year
  Sex: Male
  Weight: 109 kg

DRUGS (4)
  1. LIPITOR [Suspect]
     Indication: BLOOD CHOLESTEROL INCREASED
     Dosage: 20 mg, 1x/day
     Route: 048
     Dates: start: 2002, end: 20111231
  2. ATORVASTATIN CALCIUM [Suspect]
     Indication: BLOOD CHOLESTEROL INCREASED
     Dosage: 20 mg, 1x/day
     Route: 048
     Dates: start: 20120101, end: 20120813
  3. ASPIRIN [Concomitant]
     Dosage: UNK, 1x/day
  4. NAPROXEN [Concomitant]
     Dosage: UNK, 1x/day

REACTIONS (3)
  - Chondropathy [Unknown]
  - Spinal column stenosis [Not Recovered/Not Resolved]
  - Pain in extremity [Not Recovered/Not Resolved]
